FAERS Safety Report 9514677 (Version 1)
Quarter: 2013Q3

REPORT INFORMATION
  Report Type: Spontaneous
  Country: IN (occurrence: None)
  Receive Date: 20130906
  Receipt Date: 20130906
  Transmission Date: 20140515
  Serious: Yes (Life-Threatening, Hospitalization)
  Sender: FDA-Public Use
  Company Number: 2013/176

PATIENT
  Age: 58 Year
  Sex: Male

DRUGS (1)
  1. AMLODIPINE [Suspect]
     Indication: BLOOD PRESSURE

REACTIONS (4)
  - Procedural hypotension [None]
  - Metabolic acidosis [None]
  - Urine output decreased [None]
  - Therapeutic response decreased [None]
